FAERS Safety Report 11179210 (Version 3)
Quarter: 2015Q3

REPORT INFORMATION
  Report Type: Spontaneous
  Country: ES (occurrence: ES)
  Receive Date: 20150610
  Receipt Date: 20150713
  Transmission Date: 20151125
  Serious: Yes (Other)
  Sender: FDA-Public Use
  Company Number: ES-AMGEN-ESPSP2014040593

PATIENT
  Age: 41 Year
  Sex: Male

DRUGS (11)
  1. EPO                                /00909301/ [Concomitant]
     Active Substance: ERYTHROPOIETIN
     Indication: ANAEMIA
     Dosage: 1 INJECTION, WEEKLY
  2. ENBREL [Suspect]
     Active Substance: ETANERCEPT
     Indication: ANKYLOSING SPONDYLITIS
     Dosage: 50 MG, WEEKLY
     Route: 058
     Dates: start: 201402, end: 201412
  3. HIDROFEROL [Concomitant]
     Active Substance: CALCIFEDIOL
     Indication: OSTEOPOROSIS
     Dosage: 1 DF, WEEKLY
  4. FERROSANOL [Concomitant]
     Active Substance: FERROUS GLUCONATE
     Indication: IRON DEFICIENCY
     Dosage: 100 MG, 1X/DAY
  5. ACFOL [Concomitant]
     Active Substance: FOLIC ACID
     Dosage: 5 MG, 1X/DAY
  6. ACOVIL [Concomitant]
     Active Substance: PHENIRAMINE
     Indication: HYPERTENSION
     Dosage: 2.5 MG, 1X/DAY
  7. FERROSANOL [Concomitant]
     Active Substance: FERROUS GLUCONATE
     Indication: ANAEMIA
     Dosage: UNK
  8. ENBREL [Suspect]
     Active Substance: ETANERCEPT
     Dosage: 50 MG, WEEKLY
     Route: 065
     Dates: start: 201502, end: 20150601
  9. ROCALTROL [Concomitant]
     Active Substance: CALCITRIOL
     Indication: OSTEOPOROSIS
     Dosage: 0.5 MG, 1X/DAY
  10. NATECAL [Concomitant]
     Active Substance: CALCIUM CARBONATE\CHOLECALCIFEROL
     Indication: OSTEOPOROSIS
     Dosage: 2 DF, 3X/DAY
  11. AUXINA A+E [Concomitant]
     Indication: HYPOVITAMINOSIS
     Dosage: 1 DF, 1X/DAY

REACTIONS (5)
  - Injection site discomfort [Unknown]
  - Injection site swelling [Unknown]
  - Injection site pain [Unknown]
  - Renal impairment [Recovering/Resolving]
  - Hepatomegaly [Recovered/Resolved]

NARRATIVE: CASE EVENT DATE: 201402
